FAERS Safety Report 4763385-2 (Version None)
Quarter: 2005Q3

REPORT INFORMATION
  Report Type: 
  Country: None (occurrence: None)
  Receive Date: 20050908
  Receipt Date: 20050828
  Transmission Date: 20060218
  Serious: Yes (Death, Hospitalization)
  Sender: FDA-Public Use
  Company Number: IT-BRISTOL-MYERS SQUIBB COMPANY-13098009

PATIENT
  Age: 80 Year
  Sex: Male

DRUGS (5)
  1. TRITTICO [Suspect]
     Indication: PSYCHOMOTOR HYPERACTIVITY
     Route: 048
     Dates: start: 20040228, end: 20050618
  2. SEROQUEL [Suspect]
     Route: 048
     Dates: start: 20040224, end: 20050618
  3. SEREPRILE [Suspect]
     Route: 048
     Dates: start: 20040224, end: 20050618
  4. CARDIRENE [Concomitant]
  5. NIMOTOP [Concomitant]
     Route: 048

REACTIONS (2)
  - CARDIAC ARREST [None]
  - CHRONIC OBSTRUCTIVE PULMONARY DISEASE [None]
